FAERS Safety Report 8228536-6 (Version None)
Quarter: 2012Q1

REPORT INFORMATION
  Report Type: 
  Country: None (occurrence: None)
  Receive Date: 20120322
  Receipt Date: 20120321
  Transmission Date: 20120608
  Serious: Yes (Other)
  Sender: FDA-Public Use
  Company Number: US-GLAXOSMITHKLINE-A0970668A

PATIENT
  Age: 77 Year
  Sex: Male

DRUGS (2)
  1. NICODERM CQ [Suspect]
     Indication: PARKINSON'S DISEASE
     Route: 062
     Dates: start: 20120220
  2. ANTIPARKINSONIAN AGENT [Concomitant]

REACTIONS (3)
  - HALLUCINATION [None]
  - OFF LABEL USE [None]
  - DRUG ADMINISTRATION ERROR [None]
